FAERS Safety Report 26196575 (Version 1)
Quarter: 2025Q4

REPORT INFORMATION
  Report Type: Spontaneous
  Country: EU (occurrence: EU)
  Receive Date: 20251224
  Receipt Date: 20251224
  Transmission Date: 20260118
  Serious: Yes (Hospitalization, Other)
  Sender: ASCEND THERAPEUTICS US, LLC
  Company Number: EU-Ascend Therapeutics US, LLC-2191108

PATIENT
  Age: 27 Year
  Sex: Female

DRUGS (8)
  1. ESTROGEL [Suspect]
     Active Substance: ESTRADIOL
     Indication: Assisted reproductive technology
  2. ESTRADIOL [Suspect]
     Active Substance: ESTRADIOL
  3. ENOXAPARIN SODIUM [Suspect]
     Active Substance: ENOXAPARIN SODIUM
  4. DUPHASTON [Suspect]
     Active Substance: DYDROGESTERONE
  5. CHORIOGONADOTROPIN ALFA [Suspect]
     Active Substance: CHORIOGONADOTROPIN ALFA
  6. MENOTROPINS [Suspect]
     Active Substance: MENOTROPINS
  7. GOSERELIN [Suspect]
     Active Substance: GOSERELIN
  8. PROGESTERONE [Suspect]
     Active Substance: PROGESTERONE

REACTIONS (2)
  - Ovarian hyperstimulation syndrome [Recovered/Resolved]
  - Product use in unapproved indication [Unknown]

NARRATIVE: CASE EVENT DATE: 20251205
